FAERS Safety Report 10011268 (Version 1)
Quarter: 2014Q1

REPORT INFORMATION
  Report Type: Spontaneous
  Country: DK (occurrence: None)
  Receive Date: 20140311
  Receipt Date: 20140311
  Transmission Date: 20141002
  Serious: Yes (Death)
  Sender: FDA-Public Use
  Company Number: 2014P1001612

PATIENT
  Age: 57 Year
  Sex: Female

DRUGS (3)
  1. RISPERIDONE [Suspect]
     Route: 048
  2. ZOPICLONE [Suspect]
     Route: 048
  3. ETHANOL [Suspect]
     Route: 048

REACTIONS (3)
  - Toxicity to various agents [None]
  - Medication residue present [None]
  - Blood alcohol increased [None]
